FAERS Safety Report 4629861-8 (Version None)
Quarter: 2005Q2

REPORT INFORMATION
  Report Type: 
  Country: None (occurrence: None)
  Receive Date: 20050407
  Receipt Date: 20050331
  Transmission Date: 20051028
  Serious: Yes (Hospitalization)
  Sender: FDA-Public Use
  Company Number: 2005CG00660

PATIENT
  Sex: Male

DRUGS (1)
  1. NAROPIN [Suspect]
     Indication: LOCAL ANAESTHESIA
     Dates: start: 20050301, end: 20050301

REACTIONS (2)
  - NOSOCOMIAL INFECTION [None]
  - PROCEDURAL SITE REACTION [None]
